FAERS Safety Report 6993128-3 (Version None)
Quarter: 2010Q3

REPORT INFORMATION
  Report Type: 
  Country: None (occurrence: None)
  Receive Date: 20100917
  Receipt Date: 20100702
  Transmission Date: 20110219
  Serious: No
  Sender: FDA-Public Use
  Company Number: US-ASTRAZENECA-2010SE31060

PATIENT
  Age: 51 Year
  Sex: Female

DRUGS (3)
  1. SEROQUEL XR [Suspect]
     Route: 048
     Dates: start: 20100630
  2. PERCOCET [Concomitant]
     Indication: PILONIDAL CYST
  3. SARAFEM [Concomitant]

REACTIONS (6)
  - FEAR [None]
  - FEELING COLD [None]
  - HYPOAESTHESIA [None]
  - IRRITABILITY [None]
  - NIGHTMARE [None]
  - PALLOR [None]
